FAERS Safety Report 4601143-X (Version None)
Quarter: 2005Q1

REPORT INFORMATION
  Report Type: 
  Country: None (occurrence: None)
  Receive Date: 20050307
  Receipt Date: 20050307
  Transmission Date: 20050727
  Serious: Yes (Other)
  Sender: FDA-Public Use
  Company Number: None

PATIENT
  Age: 40 Year
  Sex: Female
  Weight: 59.8748 kg

DRUGS (1)
  1. ZITHROMAX [Suspect]
     Indication: BACTERIAL INFECTION
     Dates: start: 20050228, end: 20050301

REACTIONS (10)
  - ABDOMINAL DISCOMFORT [None]
  - DIARRHOEA [None]
  - DRY THROAT [None]
  - FEELING ABNORMAL [None]
  - HEADACHE [None]
  - HYPOAESTHESIA ORAL [None]
  - IMPAIRED WORK ABILITY [None]
  - PAIN [None]
  - PALPITATIONS [None]
  - PRURITUS [None]
